FAERS Safety Report 26210017 (Version 1)
Quarter: 2025Q4

REPORT INFORMATION
  Report Type: Spontaneous
  Country: AU (occurrence: AU)
  Receive Date: 20251229
  Receipt Date: 20251229
  Transmission Date: 20260118
  Serious: Yes (Life-Threatening)
  Sender: MYLAN
  Company Number: AU-MYLANLABS-2025M1111073

PATIENT
  Age: 45 Year
  Sex: Male

DRUGS (1)
  1. PREGABALIN [Suspect]
     Active Substance: PREGABALIN
     Indication: Product used for unknown indication
     Dosage: UNK
     Route: 061

REACTIONS (6)
  - Methaemoglobinaemia [Recovering/Resolving]
  - Coma [Unknown]
  - Respiratory acidosis [Unknown]
  - Cyanosis [Unknown]
  - Somnolence [Unknown]
  - Confusional state [Recovered/Resolved]
